FAERS Safety Report 8509078-7 (Version None)
Quarter: 2012Q3

REPORT INFORMATION
  Report Type: 
  Country: None (occurrence: None)
  Receive Date: 20120713
  Receipt Date: 20120709
  Transmission Date: 20120928
  Serious: Yes (Life-Threatening, Hospitalization)
  Sender: FDA-Public Use
  Company Number: AU-B.I. PHARMACEUTICALS,INC./RIDGEFIELD-2012-AU-01216AU

PATIENT
  Sex: Male
  Weight: 80 kg

DRUGS (1)
  1. PRADAXA [Suspect]
     Indication: ATRIAL FIBRILLATION
     Dosage: 300 MG
     Dates: start: 20110801, end: 20120628

REACTIONS (4)
  - AORTIC DISSECTION [None]
  - RENAL IMPAIRMENT [None]
  - ARTERIAL HAEMORRHAGE [None]
  - HYPOTENSION [None]
